FAERS Safety Report 24860925 (Version 1)
Quarter: 2025Q1

REPORT INFORMATION
  Report Type: Spontaneous
  Country: US (occurrence: US)
  Receive Date: 20250120
  Receipt Date: 20250120
  Transmission Date: 20250408
  Serious: No
  Sender: BAUSCH AND LOMB
  Company Number: US-BAUSCHBL-2025BNL000499

PATIENT
  Age: 68 Year
  Sex: Female

DRUGS (4)
  1. MIEBO [Suspect]
     Active Substance: PERFLUOROHEXYLOCTANE
     Indication: Dry eye
     Route: 065
     Dates: start: 202409
  2. LATANOPROST [Suspect]
     Active Substance: LATANOPROST
     Indication: Product used for unknown indication
     Route: 065
  3. TIMOLOL MALEATE [Suspect]
     Active Substance: TIMOLOL MALEATE
     Indication: Product used for unknown indication
     Route: 065
  4. THERATEARS [Concomitant]
     Active Substance: CARBOXYMETHYLCELLULOSE SODIUM
     Indication: Product used for unknown indication

REACTIONS (18)
  - Periorbital swelling [Recovered/Resolved]
  - Eyelid irritation [Recovered/Resolved]
  - Vision blurred [Unknown]
  - Eye disorder [Unknown]
  - Eyelash thickening [Unknown]
  - Drug ineffective [Unknown]
  - Adverse reaction [Unknown]
  - Eyelid disorder [Unknown]
  - Periorbital disorder [Unknown]
  - Product use complaint [Unknown]
  - Product complaint [Unknown]
  - Circumstance or information capable of leading to medication error [Unknown]
  - Product delivery mechanism issue [Unknown]
  - Extra dose administered [Unknown]
  - Intentional dose omission [Unknown]
  - Product container issue [Unknown]
  - Liquid product physical issue [Unknown]
  - Wrong technique in product usage process [Unknown]

NARRATIVE: CASE EVENT DATE: 20241201
